FAERS Safety Report 9921792 (Version 1)
Quarter: 2014Q1

REPORT INFORMATION
  Report Type: Spontaneous
  Country: US (occurrence: US)
  Receive Date: 20140225
  Receipt Date: 20140225
  Transmission Date: 20141002
  Serious: Yes (Other)
  Sender: FDA-Public Use
  Company Number: US-MALLINCKRODT-T201401365

PATIENT
  Sex: Female

DRUGS (1)
  1. METHYLIN [Suspect]
     Indication: PRODUCT USED FOR UNKNOWN INDICATION
     Dosage: 10 MG, UNK
     Route: 065

REACTIONS (4)
  - Gait disturbance [Unknown]
  - Balance disorder [Unknown]
  - Hypoaesthesia [Unknown]
  - Paraesthesia [Unknown]
